FAERS Safety Report 5096353-4 (Version None)
Quarter: 2006Q3

REPORT INFORMATION
  Report Type: 
  Country: None (occurrence: None)
  Receive Date: 20060831
  Receipt Date: 20060815
  Transmission Date: 20061208
  Serious: Yes (Other)
  Sender: FDA-Public Use
  Company Number: 2006US001801

PATIENT
  Age: 82 Year
  Sex: Male
  Weight: 68.9 kg

DRUGS (1)
  1. ADENOSCAN [Suspect]
     Indication: SCAN MYOCARDIAL PERFUSION
     Dosage: 140 RK/MIN, IV NOS
     Route: 042
     Dates: start: 20060727, end: 20060727

REACTIONS (3)
  - ATRIOVENTRICULAR BLOCK THIRD DEGREE [None]
  - PROCEDURAL COMPLICATION [None]
  - SYNCOPE [None]
